FAERS Safety Report 15009668 (Version 3)
Quarter: 2023Q1

REPORT INFORMATION
  Report Type: Spontaneous
  Country: IT (occurrence: IT)
  Receive Date: 20180614
  Receipt Date: 20230123
  Transmission Date: 20230418
  Serious: Yes (Hospitalization, Other)
  Sender: FDA-Public Use
  Company Number: IT-AUROBINDO-AUR-APL-2018-030891

PATIENT
  Age: 70 Year
  Sex: Female

DRUGS (7)
  1. ALPRAZOLAM [Suspect]
     Active Substance: ALPRAZOLAM
     Indication: Anxiety
     Dosage: IN TOTAL
     Route: 048
     Dates: start: 20180517, end: 20180517
  2. ASPIRIN [Concomitant]
     Active Substance: ASPIRIN
     Indication: Prophylaxis
     Dosage: 1 DOSAGE FORM
     Route: 048
     Dates: start: 20100101
  3. DAPAROX                            /00830802/ [Concomitant]
     Indication: Depression
     Dosage: 10 GTT
     Route: 048
     Dates: start: 20150101
  4. AMITRIPTYLINE HYDROCHLORIDE [Concomitant]
     Active Substance: AMITRIPTYLINE HYDROCHLORIDE
     Indication: Depression
     Dosage: 10 GTT
     Route: 048
     Dates: start: 20150101
  5. METFORMINA RATIOPHARM [Concomitant]
     Indication: Diabetes mellitus
     Dosage: 2 DOSAGE FORM
     Route: 048
     Dates: start: 20180517
  6. HYDROCHLOROTHIAZIDE\OLMESARTAN MEDOXOMIL [Concomitant]
     Active Substance: HYDROCHLOROTHIAZIDE\OLMESARTAN MEDOXOMIL
     Indication: Hypertension
     Dosage: 1 DOSAGE FORM, DAILY
     Route: 048
     Dates: start: 20100101
  7. SIMVASTATIN [Concomitant]
     Active Substance: SIMVASTATIN
     Indication: Hypercholesterolaemia
     Dosage: 1 DOSAGE FORM
     Route: 048
     Dates: start: 20100101

REACTIONS (4)
  - Gait disturbance [Recovering/Resolving]
  - Sopor [Recovering/Resolving]
  - Aphasia [Recovering/Resolving]
  - Overdose [Unknown]

NARRATIVE: CASE EVENT DATE: 20180517
